FAERS Safety Report 6818493-9 (Version None)
Quarter: 2010Q3

REPORT INFORMATION
  Report Type: 
  Country: None (occurrence: None)
  Receive Date: 20100706
  Receipt Date: 20080527
  Transmission Date: 20110219
  Serious: Yes (Other)
  Sender: FDA-Public Use
  Company Number: US-PFIZER INC-2008031578

PATIENT
  Sex: Female
  Weight: 75 kg

DRUGS (4)
  1. ZITHROMAX [Suspect]
     Indication: BRONCHIAL DISORDER
     Route: 048
     Dates: start: 20080402, end: 20080408
  2. ANTI-DIABETICS [Concomitant]
  3. PLAVIX [Concomitant]
  4. ZETIA [Concomitant]

REACTIONS (3)
  - DEAFNESS [None]
  - DEPRESSION [None]
  - EAR PAIN [None]
